FAERS Safety Report 4483119-9 (Version None)
Quarter: 2004Q3

REPORT INFORMATION
  Report Type: 
  Country: None (occurrence: None)
  Receive Date: 20040921
  Receipt Date: 20040609
  Transmission Date: 20050211
  Serious: Yes (Hospitalization)
  Sender: FDA-Public Use
  Company Number: 163-20785-04060304

PATIENT
  Age: 64 Year
  Sex: Male
  Weight: 92.99 kg

DRUGS (7)
  1. THALOMID [Suspect]
     Indication: CHRONIC LYMPHOCYTIC LEUKAEMIA
     Dosage: 50 MG, DAILY, ORAL
     Route: 048
     Dates: end: 20040604
  2. FOLTEX (MULTIVITAMINS) [Concomitant]
  3. KCL (POTASSIUM CHLORIDE) [Concomitant]
  4. LIPITOR [Concomitant]
  5. SENOKOT [Concomitant]
  6. TENORETIC (VALACICLOVIR HYDROCHLORIDE) [Concomitant]
  7. ASPIRIN [Concomitant]

REACTIONS (1)
  - PYREXIA [None]
